FAERS Safety Report 5093995-7 (Version None)
Quarter: 2006Q3

REPORT INFORMATION
  Report Type: 
  Country: None (occurrence: None)
  Receive Date: 20060829
  Receipt Date: 20060829
  Transmission Date: 20061208
  Serious: Yes (Death, Hospitalization)
  Sender: FDA-Public Use
  Company Number: None

PATIENT
  Sex: Female
  Weight: 125.5 kg

DRUGS (6)
  1. CYCLOPHOSPHAMIDE [Suspect]
     Dosage: 2784 MG
     Dates: start: 20060803, end: 20060803
  2. DAUNORUBICIN HCL [Suspect]
     Dosage: 555 MG
     Dates: end: 20060805
  3. DEXAMETHASONE TAB [Suspect]
     Dosage: 143 MG
     Dates: end: 20060809
  4. G-CSF (FILGRASTIM, AMGEN) [Suspect]
     Dosage: 8160 MG
     Dates: end: 20060822
  5. L-ASPARAGINASE [Suspect]
     Dosage: 41760 UNIT
     Dates: end: 20060813
  6. ALLOPURINOL [Suspect]
     Dosage: 3000 MG
     Dates: end: 20060810

REACTIONS (11)
  - ATRIAL FIBRILLATION [None]
  - BACTERIAL INFECTION [None]
  - CHEST X-RAY ABNORMAL [None]
  - FALL [None]
  - HYPOTENSION [None]
  - LETHARGY [None]
  - LOSS OF CONSCIOUSNESS [None]
  - NEUTROPENIA [None]
  - PYREXIA [None]
  - SEPSIS [None]
  - SUBARACHNOID HAEMORRHAGE [None]
